FAERS Safety Report 7390091-0 (Version None)
Quarter: 2011Q2

REPORT INFORMATION
  Report Type: 
  Country: None (occurrence: None)
  Receive Date: 20110401
  Receipt Date: 20110318
  Transmission Date: 20111010
  Serious: Yes (Hospitalization)
  Sender: FDA-Public Use
  Company Number: FR-ALLERGAN-1104513US

PATIENT
  Age: 58 Year
  Sex: Male

DRUGS (1)
  1. TROSPIUM CHLORIDE [Suspect]
     Indication: MICTURITION URGENCY
     Dosage: 20 MG, QD
     Route: 048
     Dates: start: 20100901, end: 20101121

REACTIONS (1)
  - ANTICHOLINERGIC SYNDROME [None]
